FAERS Safety Report 7958229-1 (Version None)
Quarter: 2011Q4

REPORT INFORMATION
  Report Type: 
  Country: None (occurrence: None)
  Receive Date: 20111205
  Receipt Date: 20111122
  Transmission Date: 20120403
  Serious: Yes (Disabling, Other)
  Sender: FDA-Public Use
  Company Number: CA-ROCHE-GNE243377

PATIENT
  Sex: Male
  Weight: 102.21 kg

DRUGS (9)
  1. XOLAIR [Suspect]
     Indication: ASTHMA
     Dosage: 375 MG, Q2W
     Route: 058
     Dates: start: 20050821
  2. XOLAIR [Suspect]
     Dosage: 375 MG, Q2W
     Route: 058
     Dates: start: 20090618
  3. XOLAIR [Suspect]
     Dosage: 375 MG, Q2W
     Route: 058
     Dates: start: 20090702
  4. XOLAIR [Suspect]
     Dosage: 375 MG, Q2W
     Route: 058
     Dates: start: 20090924
  5. PREDNISONE TAB [Concomitant]
     Indication: PRODUCT USED FOR UNKNOWN INDICATION
  6. XOLAIR [Suspect]
     Dosage: 375 MG, Q2W
     Dates: start: 20091008
  7. XOLAIR [Suspect]
     Dosage: 375 MG, Q2W
     Route: 058
     Dates: start: 20100330
  8. XOLAIR [Suspect]
     Dosage: 375 MG, Q2W
     Route: 058
     Dates: start: 20070418
  9. XOLAIR [Suspect]
     Dosage: 375 MG, Q2W
     Route: 058
     Dates: start: 20091203

REACTIONS (19)
  - LOWER RESPIRATORY TRACT INFECTION [None]
  - BLOOD PRESSURE ABNORMAL [None]
  - SUPRAVENTRICULAR TACHYCARDIA [None]
  - PAIN IN EXTREMITY [None]
  - HYPERHIDROSIS [None]
  - NASOPHARYNGITIS [None]
  - ASTHMA [None]
  - HEART RATE INCREASED [None]
  - WHEEZING [None]
  - HEART RATE IRREGULAR [None]
  - HAEMATOMA [None]
  - DYSPNOEA [None]
  - OBSTRUCTIVE AIRWAYS DISORDER [None]
  - DRUG INEFFECTIVE [None]
  - COMPUTERISED TOMOGRAM ABNORMAL [None]
  - COUGH [None]
  - HYPOVENTILATION [None]
  - BRONCHOSPASM [None]
  - FATIGUE [None]
